FAERS Safety Report 6999916-1 (Version None)
Quarter: 2010Q3

REPORT INFORMATION
  Report Type: 
  Country: None (occurrence: None)
  Receive Date: 20100920
  Receipt Date: 20100412
  Transmission Date: 20110219
  Serious: No
  Sender: FDA-Public Use
  Company Number: US-ASTRAZENECA-2010SE13033

PATIENT
  Age: 15424 Day
  Sex: Female

DRUGS (6)
  1. SEROQUEL XR [Suspect]
     Indication: BIPOLAR I DISORDER
     Route: 048
     Dates: start: 20100205, end: 20100322
  2. ATENOLOL [Concomitant]
  3. OMEPRAZOLE [Concomitant]
  4. XANAX [Concomitant]
     Indication: ANXIETY
  5. AMITRIPTYLINE HCL [Concomitant]
  6. SINGULAIR [Concomitant]

REACTIONS (4)
  - BIPOLAR I DISORDER [None]
  - GLOSSODYNIA [None]
  - STOMATITIS [None]
  - THROAT IRRITATION [None]
